FAERS Safety Report 5886342-1 (Version None)
Quarter: 2008Q3

REPORT INFORMATION
  Report Type: 
  Country: None (occurrence: None)
  Receive Date: 20080917
  Receipt Date: 20080908
  Transmission Date: 20090109
  Serious: Yes (Hospitalization)
  Sender: FDA-Public Use
  Company Number: B0536500A

PATIENT
  Age: 38 Year
  Sex: Female

DRUGS (3)
  1. LAMICTAL [Suspect]
     Indication: DEPRESSION
     Route: 048
     Dates: start: 20070101
  2. ANXIOLYTIC [Concomitant]
     Route: 065
  3. VICTAN [Concomitant]
     Route: 065

REACTIONS (6)
  - DRUG EXPOSURE DURING PREGNANCY [None]
  - MUSCULAR WEAKNESS [None]
  - MYALGIA [None]
  - MYOSITIS [None]
  - PREMATURE BABY [None]
  - TRANSAMINASES INCREASED [None]
